FAERS Safety Report 8881948 (Version 1)
Quarter: 2012Q4

REPORT INFORMATION
  Report Type: 
  Country: FR (occurrence: FR)
  Receive Date: 20121101
  Receipt Date: 20121101
  Transmission Date: 20130627
  Serious: Yes (Other)
  Sender: FDA-Public Use
  Company Number: FR-ABBOTT-12P-056-1002294-00

PATIENT
  Age: 87 Year
  Sex: Male

DRUGS (1)
  1. INFLUENZA VIRUS VACCINE [Suspect]
     Indication: ANTIVIRAL PROPHYLAXIS
     Route: 030
     Dates: start: 20121012, end: 20121012

REACTIONS (5)
  - Drug ineffective [Recovering/Resolving]
  - Cough [Unknown]
  - Asthenia [Unknown]
  - Pyrexia [Unknown]
  - Pneumonia [Unknown]
